FAERS Safety Report 18180658 (Version 1)
Quarter: 2020Q3

REPORT INFORMATION
  Report Type: Spontaneous
  Country: US (occurrence: US)
  Receive Date: 20200821
  Receipt Date: 20200821
  Transmission Date: 20201103
  Serious: No
  Sender: FDA-Public Use
  Company Number: None

PATIENT
  Age: 71 Year
  Weight: 125.5 kg

DRUGS (13)
  1. AMLODIPINE [Concomitant]
     Active Substance: AMLODIPINE BESYLATE
  2. NOVOLOG [Concomitant]
     Active Substance: INSULIN ASPART
  3. SYNTHROID [Concomitant]
     Active Substance: LEVOTHYROXINE SODIUM
  4. CYMBALTA [Concomitant]
     Active Substance: DULOXETINE HYDROCHLORIDE
  5. CRESTOR [Concomitant]
     Active Substance: ROSUVASTATIN CALCIUM
  6. FUROSEMIDE. [Concomitant]
     Active Substance: FUROSEMIDE
  7. CARDURA [Concomitant]
     Active Substance: DOXAZOSIN MESYLATE
  8. CAPECITABINE. [Suspect]
     Active Substance: CAPECITABINE
     Indication: HEPATIC CANCER STAGE IV
     Route: 048
     Dates: start: 20200729, end: 20200821
  9. CAPECITABINE. [Suspect]
     Active Substance: CAPECITABINE
     Indication: HEPATIC CANCER STAGE IV
     Route: 048
     Dates: start: 20200729, end: 20200821
  10. LISINOPRIL. [Concomitant]
     Active Substance: LISINOPRIL
  11. VITAMIN D [Concomitant]
     Active Substance: VITAMIN D NOS
  12. MULTIVITAMIN [Concomitant]
     Active Substance: VITAMINS
  13. TRESIBA [Concomitant]
     Active Substance: INSULIN DEGLUDEC

REACTIONS (1)
  - Death [None]

NARRATIVE: CASE EVENT DATE: 20200821
